FAERS Safety Report 16056648 (Version 1)
Quarter: 2019Q2

REPORT INFORMATION
  Report Type: Spontaneous
  Country: US (occurrence: US)
  Receive Date: 20190310
  Receipt Date: 20190310
  Transmission Date: 20190711
  Serious: No
  Sender: FDA-Public Use
  Company Number: None

PATIENT
  Age: 21 Year
  Sex: Female
  Weight: 59.85 kg

DRUGS (1)
  1. NUVARING [Suspect]
     Active Substance: ETHINYL ESTRADIOL\ETONOGESTREL
     Indication: CONTRACEPTION
     Dosage: ?          QUANTITY:1 VAGINAL RING;OTHER FREQUENCY:AS DIRECTED;?
     Route: 067
     Dates: start: 20180521, end: 20190106

REACTIONS (4)
  - Arthralgia [None]
  - Blister [None]
  - Fatigue [None]
  - Hypersomnia [None]

NARRATIVE: CASE EVENT DATE: 20181109
